FAERS Safety Report 10012542 (Version 1)
Quarter: 2014Q1

REPORT INFORMATION
  Report Type: Report from Study
  Country: US (occurrence: US)
  Receive Date: 20140314
  Receipt Date: 20140314
  Transmission Date: 20141002
  Serious: Yes (Hospitalization)
  Sender: FDA-Public Use
  Company Number: US-BRISTOL-MYERS SQUIBB COMPANY-20400586

PATIENT
  Age: 68 Year
  Sex: Female
  Weight: 57.1 kg

DRUGS (12)
  1. IBUPROFEN [Suspect]
     Indication: RHEUMATOID ARTHRITIS
     Dosage: INTERR:23JUN2013 TO 26JUN13
     Dates: start: 20120925
  2. IBUPROFEN [Suspect]
     Indication: OSTEOARTHRITIS
     Dosage: INTERR:23JUN2013 TO 26JUN13
     Dates: start: 20120925
  3. BLINDED: CELECOXIB [Suspect]
     Indication: OSTEOARTHRITIS
     Dosage: LAST DOSE:22JUN2013
     Dates: start: 20120925
  4. BLINDED: CELECOXIB [Suspect]
     Indication: RHEUMATOID ARTHRITIS
     Dosage: LAST DOSE:22JUN2013
     Dates: start: 20120925
  5. NAPROXEN [Suspect]
     Indication: RHEUMATOID ARTHRITIS
     Dosage: LAST DOSE:22JUN2013
     Dates: start: 20120925
  6. NAPROXEN [Suspect]
     Indication: RHEUMATOID ARTHRITIS
     Dates: start: 20120925, end: 20130622
  7. NAPROXEN [Suspect]
     Indication: OSTEOARTHRITIS
     Dosage: LAST DOSE:22JUN2013
     Dates: start: 20120925
  8. NAPROXEN [Suspect]
     Indication: OSTEOARTHRITIS
     Dates: start: 20120925, end: 20130622
  9. BLINDED: PLACEBO [Suspect]
     Indication: OSTEOARTHRITIS
     Dosage: 22JUN2013
     Dates: start: 20120925
  10. BLINDED: PLACEBO [Suspect]
     Indication: RHEUMATOID ARTHRITIS
     Dosage: 22JUN2013
     Dates: start: 20120925
  11. ABATACEPT SUBQ INJECTION 125MG/ML [Suspect]
     Indication: RHEUMATOID ARTHRITIS
     Route: 058
     Dates: start: 201205, end: 20130623
  12. NEXIUM [Concomitant]
     Dates: start: 20121110, end: 20130605

REACTIONS (4)
  - Orthostatic hypotension [Recovered/Resolved]
  - Syncope [Recovered/Resolved]
  - Nausea [Recovered/Resolved]
  - Vomiting [Recovered/Resolved]
